FAERS Safety Report 9454450 (Version 1)
Quarter: 2013Q3

REPORT INFORMATION
  Report Type: Report from Study
  Country: BR (occurrence: BR)
  Receive Date: 20130812
  Receipt Date: 20130812
  Transmission Date: 20140515
  Serious: Yes (Death, Hospitalization)
  Sender: FDA-Public Use
  Company Number: BR-ABBOTT-13P-020-1111048-00

PATIENT
  Sex: Female
  Weight: 67 kg

DRUGS (1)
  1. HUMIRA [Suspect]
     Indication: RHEUMATOID ARTHRITIS
     Route: 058
     Dates: start: 20120526

REACTIONS (5)
  - Metastatic neoplasm [Fatal]
  - Pancreatic carcinoma [Fatal]
  - Hepatic cancer [Fatal]
  - Malaise [Unknown]
  - Vomiting [Unknown]
